FAERS Safety Report 9676320 (Version 2)
Quarter: 2013Q4

REPORT INFORMATION
  Report Type: Spontaneous
  Country: US (occurrence: US)
  Receive Date: 20131107
  Receipt Date: 20131112
  Transmission Date: 20140711
  Serious: Yes (Hospitalization, Other)
  Sender: FDA-Public Use
  Company Number: US-BAXTER-2013BAX043503

PATIENT
  Age: 58 Year
  Sex: Female
  Weight: 99.88 kg

DRUGS (7)
  1. GAMMAGARD S/D [Suspect]
     Indication: IMMUNODEFICIENCY COMMON VARIABLE
     Route: 042
     Dates: start: 1990
  2. PREDNISONE [Concomitant]
     Indication: PRODUCT USED FOR UNKNOWN INDICATION
     Route: 048
  3. SYNTHROID [Concomitant]
     Indication: THYROIDECTOMY
     Route: 048
     Dates: start: 1996
  4. CYTOMEL [Concomitant]
     Indication: THYROIDECTOMY
     Route: 048
     Dates: start: 1996
  5. FIORICET [Concomitant]
     Indication: HEADACHE
     Dosage: AS REQUIRED
     Route: 048
     Dates: start: 2006
  6. LOVENOX [Concomitant]
     Indication: PULMONARY EMBOLISM
     Route: 058
     Dates: start: 1990
  7. LOVENOX [Concomitant]
     Indication: PROTEIN C DEFICIENCY

REACTIONS (1)
  - Clostridium difficile infection [Recovered/Resolved]
